FAERS Safety Report 9871393 (Version 2)
Quarter: 2014Q1

REPORT INFORMATION
  Report Type: Spontaneous
  Country: FR (occurrence: FR)
  Receive Date: 20140205
  Receipt Date: 20140311
  Transmission Date: 20141002
  Serious: Yes (Other)
  Sender: FDA-Public Use
  Company Number: CH-WATSON-2014-01811

PATIENT
  Sex: Male

DRUGS (2)
  1. TRELSTAR (WATSON LABORATORIES) [Suspect]
     Indication: PARAPHILIA
     Dosage: 1 DF, EVERY 3 MONTHS
     Route: 030
     Dates: start: 2010
  2. ANDROCUR [Concomitant]
     Indication: PRODUCT USED FOR UNKNOWN INDICATION

REACTIONS (3)
  - Drug ineffective [Unknown]
  - Needle issue [Unknown]
  - Underdose [Unknown]
